FAERS Safety Report 6890389-6 (Version None)
Quarter: 2010Q3

REPORT INFORMATION
  Report Type: 
  Country: None (occurrence: None)
  Receive Date: 20100730
  Receipt Date: 20081112
  Transmission Date: 20110219
  Serious: No
  Sender: FDA-Public Use
  Company Number: US-PFIZER INC-2008080302

PATIENT
  Sex: Male
  Weight: 95.454 kg

DRUGS (2)
  1. LIPITOR [Suspect]
     Indication: BLOOD CHOLESTEROL
  2. ACETYLSALICYLIC ACID SRT [Concomitant]

REACTIONS (3)
  - CHEST DISCOMFORT [None]
  - DYSPNOEA [None]
  - MUSCLE FATIGUE [None]
